FAERS Safety Report 4521951-3 (Version None)
Quarter: 2004Q4

REPORT INFORMATION
  Report Type: 
  Country: None (occurrence: None)
  Receive Date: 20041207
  Receipt Date: 20041122
  Transmission Date: 20050328
  Serious: Yes (Hospitalization, Other)
  Sender: FDA-Public Use
  Company Number: USA041081174

PATIENT
  Age: 76 Year
  Sex: Female
  Weight: 64 kg

DRUGS (12)
  1. FORTEO [Suspect]
     Indication: OSTEOPOROSIS
  2. DIOVAN HCT [Concomitant]
  3. LEVOXYL [Concomitant]
  4. NORVASC [Concomitant]
  5. SEREVENT [Concomitant]
  6. DURAGESIC [Concomitant]
  7. CALCIUM D [Concomitant]
  8. CALCITRIOL [Concomitant]
  9. VIOXX [Concomitant]
  10. PREMARIN [Concomitant]
  11. AZMACORT [Concomitant]
  12. VALSARTAN [Concomitant]

REACTIONS (2)
  - HYPERCALCAEMIA [None]
  - LETHARGY [None]
